FAERS Safety Report 9927092 (Version 1)
Quarter: 2014Q1

REPORT INFORMATION
  Report Type: Spontaneous
  Country: US (occurrence: US)
  Receive Date: 20140226
  Receipt Date: 20140226
  Transmission Date: 20141002
  Serious: No
  Sender: FDA-Public Use
  Company Number: US-AMGEN-USASP2014001234

PATIENT
  Age: 30 Year
  Sex: Male
  Weight: 77.1 kg

DRUGS (5)
  1. ENBREL [Suspect]
     Indication: ANKYLOSING SPONDYLITIS
     Dosage: 50 MG, ONCE A WEEK
     Route: 058
     Dates: start: 20131230
  2. IBUPROFEN [Concomitant]
     Dosage: UNK
  3. ISONIAZID [Concomitant]
     Dosage: UNK
  4. METRONIDAZOLE [Concomitant]
     Dosage: UNK
  5. ORACEA [Concomitant]
     Dosage: UNK

REACTIONS (2)
  - Nausea [Unknown]
  - Asthenia [Unknown]
